FAERS Safety Report 14160171 (Version 1)
Quarter: 2017Q4

REPORT INFORMATION
  Report Type: Spontaneous
  Country: JP (occurrence: JP)
  Receive Date: 20171103
  Receipt Date: 20171103
  Transmission Date: 20180321
  Serious: Yes (Other)
  Sender: FDA-Public Use
  Company Number: PHJP2017JP030334

PATIENT
  Age: 50 Year
  Sex: Male

DRUGS (2)
  1. NEORAL [Suspect]
     Active Substance: CYCLOSPORINE
     Indication: GLOMERULONEPHRITIS MEMBRANOUS
     Dosage: UNK
     Route: 048
  2. MIZORIBINE [Concomitant]
     Active Substance: MIZORIBINE
     Indication: GLOMERULONEPHRITIS MEMBRANOUS
     Dosage: UNK
     Route: 065

REACTIONS (4)
  - Product use in unapproved indication [Unknown]
  - Nephrosclerosis [Not Recovered/Not Resolved]
  - Proteinuria [Recovering/Resolving]
  - Renal impairment [Recovering/Resolving]
